FAERS Safety Report 5497357-X (Version None)
Quarter: 2007Q4

REPORT INFORMATION
  Report Type: 
  Country: None (occurrence: None)
  Receive Date: 20071025
  Receipt Date: 20061009
  Transmission Date: 20080405
  Serious: No
  Sender: FDA-Public Use
  Company Number: A0622907A

PATIENT
  Sex: Female

DRUGS (4)
  1. ADVAIR DISKUS 100/50 [Suspect]
     Indication: CHRONIC OBSTRUCTIVE PULMONARY DISEASE
     Dosage: 1PUFF TWICE PER DAY
     Route: 055
     Dates: start: 20040101
  2. FOSAMAX [Concomitant]
  3. ALBUTEROL [Concomitant]
  4. MULTI-VITAMIN [Concomitant]

REACTIONS (5)
  - BONE DENSITY DECREASED [None]
  - DYSPHONIA [None]
  - DYSPNOEA [None]
  - FUNGAL INFECTION [None]
  - RESPIRATORY DISORDER [None]
